FAERS Safety Report 19766993 (Version 1)
Quarter: 2021Q3

REPORT INFORMATION
  Report Type: Spontaneous
  Country: US (occurrence: US)
  Receive Date: 20210830
  Receipt Date: 20210830
  Transmission Date: 20211014
  Serious: Yes (Other)
  Sender: FDA-Public Use
  Company Number: None

PATIENT
  Age: 84 Year
  Sex: Male
  Weight: 94.5 kg

DRUGS (8)
  1. DILT?XR 180 MG [Concomitant]
  2. HYDRALAZINE [Concomitant]
     Active Substance: HYDRALAZINE HYDROCHLORIDE
  3. LAMICTAL 150 MG [Concomitant]
  4. LEVOTHYROXINE. [Concomitant]
     Active Substance: LEVOTHYROXINE
  5. CLOPIDOGREL [Concomitant]
     Active Substance: CLOPIDOGREL BISULFATE
  6. METOPROLOL. [Concomitant]
     Active Substance: METOPROLOL
  7. ROSUVASTATIN. [Suspect]
     Active Substance: ROSUVASTATIN
     Indication: ANGIOPATHY
     Route: 048
     Dates: start: 20210702, end: 20210813
  8. LOSARTAN. [Concomitant]
     Active Substance: LOSARTAN

REACTIONS (2)
  - Middle insomnia [None]
  - Insomnia [None]

NARRATIVE: CASE EVENT DATE: 20210810
